FAERS Safety Report 13890176 (Version 2)
Quarter: 2017Q4

REPORT INFORMATION
  Report Type: Spontaneous
  Country: JP (occurrence: JP)
  Receive Date: 20170822
  Receipt Date: 20171201
  Transmission Date: 20180320
  Serious: Yes (Other)
  Sender: FDA-Public Use
  Company Number: JP-NOVOPROD-549494

PATIENT
  Age: 37 Year
  Sex: Female
  Weight: 61 kg

DRUGS (7)
  1. NOVORAPID [Suspect]
     Active Substance: INSULIN ASPART
     Indication: TYPE 2 DIABETES MELLITUS
     Dosage: 4 IU, TID
     Route: 058
     Dates: start: 20170120
  2. NOVORAPID [Suspect]
     Active Substance: INSULIN ASPART
     Dosage: 7 IU, TID
     Route: 058
     Dates: start: 20170131
  3. LEVEMIR [Suspect]
     Active Substance: INSULIN DETEMIR
     Indication: TYPE 2 DIABETES MELLITUS
     Dosage: 4 IU, QD
     Route: 065
     Dates: start: 20170120
  4. NOVORAPID [Suspect]
     Active Substance: INSULIN ASPART
     Dosage: 6 IU, TID
     Route: 058
     Dates: start: 20170124
  5. NOVORAPID [Suspect]
     Active Substance: INSULIN ASPART
     Dosage: 8 IU, TID
     Route: 058
     Dates: start: 20170208
  6. LEVEMIR [Suspect]
     Active Substance: INSULIN DETEMIR
     Dosage: 6 IU, QD
     Route: 065
     Dates: start: 20170124
  7. LEVEMIR [Suspect]
     Active Substance: INSULIN DETEMIR
     Dosage: 8 IU, QD
     Route: 065
     Dates: start: 20170131

REACTIONS (2)
  - Abortion spontaneous [Recovered/Resolved]
  - Exposure during pregnancy [Recovered/Resolved]

NARRATIVE: CASE EVENT DATE: 20170120
